FAERS Safety Report 18593764 (Version 2)
Quarter: 2021Q4

REPORT INFORMATION
  Report Type: Spontaneous
  Country: CO (occurrence: CO)
  Receive Date: 20201209
  Receipt Date: 20211214
  Transmission Date: 20220303
  Serious: Yes (Other)
  Sender: FDA-Public Use
  Company Number: CO-LUPIN PHARMACEUTICALS INC.-2020-10205

PATIENT
  Sex: Female
  Weight: 2.115 kg

DRUGS (1)
  1. QUININE SULFATE [Suspect]
     Active Substance: QUININE SULFATE
     Indication: Plasmodium falciparum infection
     Dosage: UNK
     Route: 064

REACTIONS (9)
  - Sepsis neonatal [Recovered/Resolved]
  - Plasmodium falciparum infection [Recovered/Resolved]
  - Low birth weight baby [Unknown]
  - Foetal exposure during pregnancy [Unknown]
  - Hepatosplenomegaly [Recovered/Resolved]
  - Pallor [Recovered/Resolved]
  - Jaundice [Recovered/Resolved]
  - Pyrexia [Recovered/Resolved]
  - Petechiae [Recovered/Resolved]
